FAERS Safety Report 6807556-X (Version None)
Quarter: 2010Q2

REPORT INFORMATION
  Report Type: 
  Country: None (occurrence: None)
  Receive Date: 20100625
  Receipt Date: 20100610
  Transmission Date: 20101027
  Serious: Yes (Hospitalization)
  Sender: FDA-Public Use
  Company Number: A-NJ2010-35981

PATIENT
  Age: 82 Year
  Sex: Female

DRUGS (1)
  1. TRACLEER [Suspect]
     Indication: PULMONARY ARTERIAL HYPERTENSION
     Dosage: ORAL
     Route: 048
     Dates: start: 20100331, end: 20100416

REACTIONS (6)
  - AGITATION [None]
  - CEREBROVASCULAR ACCIDENT [None]
  - CONFUSIONAL STATE [None]
  - DISORIENTATION [None]
  - MENTAL STATUS CHANGES [None]
  - TRANSIENT ISCHAEMIC ATTACK [None]
